FAERS Safety Report 13763907 (Version 1)
Quarter: 2017Q3

REPORT INFORMATION
  Report Type: Spontaneous
  Country: GB (occurrence: GB)
  Receive Date: 20170718
  Receipt Date: 20170718
  Transmission Date: 20171127
  Serious: Yes (Hospitalization)
  Sender: FDA-Public Use
  Company Number: GB-SEBELA IRELAND LIMITED-2017SEB00343

PATIENT
  Age: 32 Year
  Sex: Female

DRUGS (6)
  1. RITUXIMAB. [Suspect]
     Active Substance: RITUXIMAB
     Dosage: 1 G X 2
     Dates: start: 201403
  2. PREDNISOLONE. [Suspect]
     Active Substance: PREDNISOLONE
     Indication: DERMATOMYOSITIS
     Dosage: 10 MG, 1X/DAY
     Route: 065
     Dates: start: 201501, end: 201509
  3. AZATHIOPRINE. [Suspect]
     Active Substance: AZATHIOPRINE
     Indication: DERMATOMYOSITIS
     Route: 065
  4. PREDNISOLONE. [Suspect]
     Active Substance: PREDNISOLONE
     Dosage: 5 MG, 1X/DAY
     Dates: start: 201509
  5. AZATHIOPRINE. [Suspect]
     Active Substance: AZATHIOPRINE
     Dosage: 100 MG, 1X/DAY
     Route: 065
     Dates: start: 201501, end: 201509
  6. RITUXIMAB. [Suspect]
     Active Substance: RITUXIMAB
     Indication: DERMATOMYOSITIS
     Dosage: 1 G X 2
     Route: 065
     Dates: start: 201305

REACTIONS (4)
  - Pancytopenia [Recovered/Resolved]
  - Neutropenic sepsis [Unknown]
  - Herpes simplex encephalitis [Recovering/Resolving]
  - Anterograde amnesia [Recovering/Resolving]

NARRATIVE: CASE EVENT DATE: 2015
